FAERS Safety Report 11668420 (Version 1)
Quarter: 2015Q4

REPORT INFORMATION
  Report Type: Spontaneous
  Country: FR (occurrence: FR)
  Receive Date: 20151027
  Receipt Date: 20151027
  Transmission Date: 20160304
  Serious: Yes (Other)
  Sender: FDA-Public Use
  Company Number: FR-SA-2015SA162160

PATIENT
  Age: 62 Year
  Sex: Male

DRUGS (11)
  1. LOVENOX [Suspect]
     Active Substance: ENOXAPARIN SODIUM
     Route: 058
     Dates: start: 20150908, end: 20150922
  2. OFLOXACIN. [Suspect]
     Active Substance: OFLOXACIN
     Indication: URINARY TRACT INFECTION
     Route: 048
     Dates: start: 20150918, end: 20150922
  3. AMLODIPINE [Suspect]
     Active Substance: AMLODIPINE BESYLATE
     Route: 048
     Dates: start: 20150908
  4. PRAVASTATIN [Concomitant]
     Active Substance: PRAVASTATIN\PRAVASTATIN SODIUM
     Route: 065
  5. NEFOPAM [Suspect]
     Active Substance: NEFOPAM
     Route: 048
     Dates: start: 20150910
  6. PARACETAMOL [Suspect]
     Active Substance: ACETAMINOPHEN
     Route: 051
     Dates: start: 20150907, end: 20150910
  7. PARACETAMOL [Suspect]
     Active Substance: ACETAMINOPHEN
     Route: 048
     Dates: start: 20150910
  8. TOPALGIC [Suspect]
     Active Substance: TRAMADOL
     Route: 048
     Dates: start: 20150907
  9. CANDESARTAN CILEXETIL AND HYDROCHLOROTHIAZIDE [Concomitant]
     Active Substance: CANDESARTAN CILEXETIL\HYDROCHLOROTHIAZIDE
     Route: 065
  10. MOVICOL [Suspect]
     Active Substance: POLYETHYLENE GLYCOL 3350\POTASSIUM CHLORIDE\SODIUM BICARBONATE\SODIUM CHLORIDE
     Route: 048
     Dates: start: 20150913
  11. JOSIR LP [Suspect]
     Active Substance: TAMSULOSIN
     Route: 048
     Dates: start: 20150916

REACTIONS (3)
  - Renal impairment [None]
  - Escherichia urinary tract infection [None]
  - Oedema peripheral [Recovering/Resolving]

NARRATIVE: CASE EVENT DATE: 201509
